FAERS Safety Report 6497712-5 (Version None)
Quarter: 2009Q4

REPORT INFORMATION
  Report Type: 
  Country: None (occurrence: None)
  Receive Date: 20091211
  Receipt Date: 20091202
  Transmission Date: 20100525
  Serious: Yes (Hospitalization, Other)
  Sender: FDA-Public Use
  Company Number: 2009SP035360

PATIENT
  Age: 66 Year
  Sex: Female
  Weight: 96.6 kg

DRUGS (25)
  1. MIRTAZAPINE [Suspect]
     Indication: DEPRESSION
     Dosage: 7.5 MG; QD; PO 15 MG; QD; PO 30 MG; QD; PO 15 MG; QD; PO 7.5 MG; QD; PO
     Route: 048
     Dates: end: 20090415
  2. MIRTAZAPINE [Suspect]
     Indication: DEPRESSION
     Dosage: 7.5 MG; QD; PO 15 MG; QD; PO 30 MG; QD; PO 15 MG; QD; PO 7.5 MG; QD; PO
     Route: 048
     Dates: start: 20090416, end: 20090430
  3. MIRTAZAPINE [Suspect]
     Indication: DEPRESSION
     Dosage: 7.5 MG; QD; PO 15 MG; QD; PO 30 MG; QD; PO 15 MG; QD; PO 7.5 MG; QD; PO
     Route: 048
     Dates: start: 20090501, end: 20090615
  4. MIRTAZAPINE [Suspect]
     Indication: DEPRESSION
     Dosage: 7.5 MG; QD; PO 15 MG; QD; PO 30 MG; QD; PO 15 MG; QD; PO 7.5 MG; QD; PO
     Route: 048
     Dates: start: 20090616, end: 20090616
  5. MIRTAZAPINE [Suspect]
     Indication: DEPRESSION
     Dosage: 7.5 MG; QD; PO 15 MG; QD; PO 30 MG; QD; PO 15 MG; QD; PO 7.5 MG; QD; PO
     Route: 048
     Dates: start: 20090617, end: 20090617
  6. DEPAKENE [Suspect]
     Indication: DRUG USE FOR UNKNOWN INDICATION
     Dosage: 1500 MG; QD; PO 900 MG; QD; PO; 600 MG; QD; PO 450 MG; QD; PO 300 MG; QD; PO 150 MG; QD; PO
     Route: 048
     Dates: start: 20020101, end: 20060101
  7. DEPAKENE [Suspect]
     Indication: DRUG USE FOR UNKNOWN INDICATION
     Dosage: 1500 MG; QD; PO 900 MG; QD; PO; 600 MG; QD; PO 450 MG; QD; PO 300 MG; QD; PO 150 MG; QD; PO
     Route: 048
     Dates: start: 20060101, end: 20090617
  8. DEPAKENE [Suspect]
     Indication: DRUG USE FOR UNKNOWN INDICATION
     Dosage: 1500 MG; QD; PO 900 MG; QD; PO; 600 MG; QD; PO 450 MG; QD; PO 300 MG; QD; PO 150 MG; QD; PO
     Route: 048
     Dates: start: 20090618, end: 20090618
  9. DEPAKENE [Suspect]
     Indication: DRUG USE FOR UNKNOWN INDICATION
     Dosage: 1500 MG; QD; PO 900 MG; QD; PO; 600 MG; QD; PO 450 MG; QD; PO 300 MG; QD; PO 150 MG; QD; PO
     Route: 048
     Dates: start: 20090619, end: 20090619
  10. DEPAKENE [Suspect]
     Indication: DRUG USE FOR UNKNOWN INDICATION
     Dosage: 1500 MG; QD; PO 900 MG; QD; PO; 600 MG; QD; PO 450 MG; QD; PO 300 MG; QD; PO 150 MG; QD; PO
     Route: 048
     Dates: start: 20090620, end: 20090620
  11. DEPAKENE [Suspect]
     Indication: DRUG USE FOR UNKNOWN INDICATION
     Dosage: 1500 MG; QD; PO 900 MG; QD; PO; 600 MG; QD; PO 450 MG; QD; PO 300 MG; QD; PO 150 MG; QD; PO
     Route: 048
     Dates: start: 20090621, end: 20090621
  12. ZOLOFT [Suspect]
     Indication: HYPERTENSION
     Dosage: 50 MG; QD; PO 100 MG; QD; PO 150 MG; QD; PO 200 MG; QD; PO 250 MG; QD; PO 150 MG; QD; PO
     Route: 048
     Dates: start: 20090326, end: 20090407
  13. ZOLOFT [Suspect]
     Indication: HYPERTENSION
     Dosage: 50 MG; QD; PO 100 MG; QD; PO 150 MG; QD; PO 200 MG; QD; PO 250 MG; QD; PO 150 MG; QD; PO
     Route: 048
     Dates: start: 20090408, end: 20090423
  14. ZOLOFT [Suspect]
     Indication: HYPERTENSION
     Dosage: 50 MG; QD; PO 100 MG; QD; PO 150 MG; QD; PO 200 MG; QD; PO 250 MG; QD; PO 150 MG; QD; PO
     Route: 048
     Dates: start: 20090424, end: 20090426
  15. ZOLOFT [Suspect]
     Indication: HYPERTENSION
     Dosage: 50 MG; QD; PO 100 MG; QD; PO 150 MG; QD; PO 200 MG; QD; PO 250 MG; QD; PO 150 MG; QD; PO
     Route: 048
     Dates: start: 20090427, end: 20090511
  16. ZOLOFT [Suspect]
     Indication: HYPERTENSION
     Dosage: 50 MG; QD; PO 100 MG; QD; PO 150 MG; QD; PO 200 MG; QD; PO 250 MG; QD; PO 150 MG; QD; PO
     Route: 048
     Dates: start: 20090512, end: 20090612
  17. ZOLOFT [Suspect]
     Indication: HYPERTENSION
     Dosage: 50 MG; QD; PO 100 MG; QD; PO 150 MG; QD; PO 200 MG; QD; PO 250 MG; QD; PO 150 MG; QD; PO
     Route: 048
     Dates: start: 20090613
  18. MARCUMAR [Concomitant]
  19. AMLODIPINE [Concomitant]
  20. L-THYROXIN [Concomitant]
  21. LASIX [Concomitant]
  22. ASPIRIN [Concomitant]
  23. BENALAPRIL [Concomitant]
  24. ZOP [Concomitant]
  25. LAMICTAL [Concomitant]

REACTIONS (11)
  - ALANINE AMINOTRANSFERASE INCREASED [None]
  - ASPARTATE AMINOTRANSFERASE INCREASED [None]
  - BILIARY DILATATION [None]
  - BIPOLAR DISORDER [None]
  - BLOOD ALKALINE PHOSPHATASE INCREASED [None]
  - CHOLELITHIASIS [None]
  - DEPRESSION [None]
  - DRUG INTERACTION [None]
  - GAMMA-GLUTAMYLTRANSFERASE INCREASED [None]
  - HYPERTENSION [None]
  - SPLENOMEGALY [None]
